FAERS Safety Report 9389013 (Version 1)
Quarter: 2013Q3

REPORT INFORMATION
  Report Type: Report from Study
  Country: US (occurrence: US)
  Receive Date: 20130708
  Receipt Date: 20130708
  Transmission Date: 20140515
  Serious: Yes (Hospitalization)
  Sender: FDA-Public Use
  Company Number: US-PFIZER INC-2013198323

PATIENT
  Age: 59 Year
  Sex: Female
  Weight: 90.34 kg

DRUGS (33)
  1. BLINDED BUPROPION HCL [Suspect]
     Indication: SMOKING CESSATION THERAPY
     Dosage: BLINDED THERAPY, 2X/DAY
     Route: 048
     Dates: start: 20130201, end: 20130425
  2. BLINDED BUPROPION HCL [Suspect]
     Indication: SMOKING CESSATION THERAPY
     Dosage: BLINDED THERAPY, 2X/DAY
     Route: 048
     Dates: start: 20130201, end: 20130425
  3. BLINDED NICOTINE [Suspect]
     Indication: SMOKING CESSATION THERAPY
     Dosage: BLINDED THERAPY, 2X/DAY
     Route: 048
     Dates: start: 20130201, end: 20130425
  4. BLINDED NICOTINE [Suspect]
     Indication: SMOKING CESSATION THERAPY
     Dosage: BLINDED THERAPY, 2X/DAY
     Route: 048
     Dates: start: 20130201, end: 20130425
  5. BLINDED PLACEBO [Suspect]
     Indication: SMOKING CESSATION THERAPY
     Dosage: BLINDED THERAPY, 2X/DAY
     Route: 048
     Dates: start: 20130201, end: 20130425
  6. BLINDED PLACEBO [Suspect]
     Indication: SMOKING CESSATION THERAPY
     Dosage: BLINDED THERAPY, 2X/DAY
     Route: 048
     Dates: start: 20130201, end: 20130425
  7. BLINDED PLACEBO [Suspect]
     Indication: SMOKING CESSATION THERAPY
     Dosage: BLINDED THERAPY, 2X/DAY
     Route: 048
     Dates: start: 20130201, end: 20130425
  8. BLINDED VARENICLINE TARTRATE [Suspect]
     Indication: SMOKING CESSATION THERAPY
     Dosage: BLINDED THERAPY, 2X/DAY
     Route: 048
     Dates: start: 20130201, end: 20130425
  9. BLINDED VARENICLINE TARTRATE [Suspect]
     Indication: SMOKING CESSATION THERAPY
     Dosage: BLINDED THERAPY, 2X/DAY
     Route: 048
     Dates: start: 20130201, end: 20130425
  10. BLINDED BUPROPION HCL [Suspect]
     Dosage: BLINDED THERAPY, 1X/DAY
     Route: 062
     Dates: start: 20130208, end: 20130426
  11. BLINDED BUPROPION HCL [Suspect]
     Dosage: BLINDED THERAPY, 1X/DAY
     Route: 062
     Dates: start: 20130208, end: 20130426
  12. BLINDED NICOTINE [Suspect]
     Dosage: BLINDED THERAPY, 1X/DAY
     Route: 062
     Dates: start: 20130208, end: 20130426
  13. BLINDED NICOTINE [Suspect]
     Dosage: BLINDED THERAPY, 1X/DAY
     Route: 062
     Dates: start: 20130208, end: 20130426
  14. BLINDED PLACEBO [Suspect]
     Dosage: BLINDED THERAPY, 1X/DAY
     Route: 062
     Dates: start: 20130208, end: 20130426
  15. BLINDED PLACEBO [Suspect]
     Dosage: BLINDED THERAPY, 1X/DAY
     Route: 062
     Dates: start: 20130208, end: 20130426
  16. BLINDED PLACEBO [Suspect]
     Dosage: BLINDED THERAPY, 1X/DAY
     Route: 062
     Dates: start: 20130208, end: 20130426
  17. BLINDED VARENICLINE TARTRATE [Suspect]
     Dosage: BLINDED THERAPY, 1X/DAY
     Route: 062
     Dates: start: 20130208, end: 20130426
  18. BLINDED VARENICLINE TARTRATE [Suspect]
     Dosage: BLINDED THERAPY, 1X/DAY
     Route: 062
     Dates: start: 20130208, end: 20130426
  19. AMLODIPINE BESILATE [Suspect]
     Indication: HYPERTENSION
     Dosage: 10 MG, 1X/DAY
     Route: 048
     Dates: start: 2012
  20. ASPIRIN [Suspect]
     Indication: CARDIOVASCULAR EVENT PROPHYLAXIS
     Dosage: 81 MG, 1X/DAY
     Route: 048
     Dates: start: 2011
  21. DEPAKOTE [Concomitant]
     Indication: BIPOLAR DISORDER
     Dosage: UNK
  22. ZOLOFT [Concomitant]
     Indication: BIPOLAR DISORDER
     Dosage: UNK
  23. RISPERDAL [Concomitant]
     Indication: BIPOLAR DISORDER
     Dosage: UNK
  24. LISINOPRIL [Concomitant]
     Indication: HYPERTENSION
     Dosage: UNK
  25. IBUPROFEN [Concomitant]
     Indication: ARTHRITIS
     Dosage: UNK
  26. IBUPROFEN [Concomitant]
     Indication: MIGRAINE
  27. METFORMIN [Concomitant]
     Indication: TYPE 2 DIABETES MELLITUS
     Dosage: UNK
  28. CALCIUM WITH VITAMIN D [Concomitant]
     Indication: NUTRITIONAL SUPPLEMENTATION
     Dosage: UNK
  29. MELATONIN [Concomitant]
     Indication: SLEEP DISORDER
     Dosage: UNK
  30. MELATONIN [Concomitant]
     Indication: INSOMNIA
  31. GABAPENTIN [Concomitant]
     Indication: PAIN IN EXTREMITY
     Dosage: UNK
  32. GABAPENTIN [Concomitant]
     Indication: ARTHRALGIA
  33. PRAVASTATIN [Concomitant]
     Indication: HYPERCHOLESTEROLAEMIA
     Dosage: UNK

REACTIONS (1)
  - Non-cardiac chest pain [Recovered/Resolved]
